FAERS Safety Report 9513886 (Version 2)
Quarter: 2013Q4

REPORT INFORMATION
  Report Type: Spontaneous
  Country: US (occurrence: US)
  Receive Date: 20130910
  Receipt Date: 20131004
  Transmission Date: 20140711
  Serious: Yes (Other)
  Sender: FDA-Public Use
  Company Number: US-BAXTER-2013BAX035143

PATIENT
  Sex: Female
  Weight: 79.55 kg

DRUGS (5)
  1. GAMMAGARD LIQUID [Suspect]
     Indication: INFECTION PROPHYLAXIS
     Route: 042
     Dates: start: 20130826
  2. GAMMAGARD LIQUID [Suspect]
     Route: 042
     Dates: start: 201309, end: 201309
  3. ADVAIR [Concomitant]
     Indication: PRODUCT USED FOR UNKNOWN INDICATION
     Route: 055
  4. KLONOPIN [Concomitant]
     Indication: PRODUCT USED FOR UNKNOWN INDICATION
     Route: 048
  5. ASPIRIN [Concomitant]
     Indication: PRODUCT USED FOR UNKNOWN INDICATION
     Route: 065

REACTIONS (1)
  - Dyspnoea [Not Recovered/Not Resolved]
